FAERS Safety Report 8562691-3 (Version None)
Quarter: 2012Q3

REPORT INFORMATION
  Report Type: 
  Country: None (occurrence: None)
  Receive Date: 20120802
  Receipt Date: 20120720
  Transmission Date: 20120928
  Serious: Yes (Hospitalization)
  Sender: FDA-Public Use
  Company Number: US-WATSON-2012-12978

PATIENT
  Sex: Female

DRUGS (1)
  1. DROSPIRENONE AND ETHINYL ESTRADIOL [Suspect]
     Indication: PRODUCT USED FOR UNKNOWN INDICATION
     Dosage: UNK
     Route: 065
     Dates: start: 20110418, end: 20110907

REACTIONS (7)
  - SWELLING [None]
  - DYSPNOEA [None]
  - PAIN [None]
  - FATIGUE [None]
  - JOINT INJURY [None]
  - PULMONARY EMBOLISM [None]
  - PLEURITIC PAIN [None]
